FAERS Safety Report 5291815-9 (Version None)
Quarter: 2007Q2

REPORT INFORMATION
  Report Type: 
  Country: None (occurrence: None)
  Receive Date: 20070405
  Receipt Date: 20070405
  Transmission Date: 20071010
  Serious: Yes (Death)
  Sender: FDA-Public Use
  Company Number: None

PATIENT
  Sex: Female
  Weight: 4.9896 kg

DRUGS (2)
  1. SYNAGIS [Suspect]
     Indication: ANTIVIRAL PROPHYLAXIS
     Dosage: 85MG 1ST DOSE IM
     Route: 030
     Dates: start: 20061113
  2. SYNAGIS [Suspect]
     Indication: PREMATURE BABY
     Dosage: 85MG 1ST DOSE IM
     Route: 030
     Dates: start: 20061113

REACTIONS (1)
  - DEATH [None]
